FAERS Safety Report 16898292 (Version 2)
Quarter: 2019Q4

REPORT INFORMATION
  Report Type: Spontaneous
  Country: DE (occurrence: DE)
  Receive Date: 20191009
  Receipt Date: 20191220
  Transmission Date: 20200122
  Serious: Yes (Hospitalization, Other)
  Sender: FDA-Public Use
  Company Number: DE-AUROBINDO-AUR-APL-2019-065066

PATIENT
  Age: 82 Year
  Sex: Male

DRUGS (5)
  1. FORTECORTIN [Interacting]
     Active Substance: DEXAMETHASONE
     Dosage: 0.5 DOSAGE FORM, ONCE A DAY (DAY 4)
     Route: 048
     Dates: start: 20190627
  2. FORTECORTIN [Interacting]
     Active Substance: DEXAMETHASONE
     Dosage: 1 DOSAGE FORM, ONCE A DAY (DAY 1 TO 3)
     Route: 048
     Dates: start: 20190624, end: 20190626
  3. FORTECORTIN [Interacting]
     Active Substance: DEXAMETHASONE
     Indication: SEASONAL ALLERGY
     Dosage: 1 DOSAGE FORM, ONCE A DAY (0.5 DAY, DAY 1 TO 3)
     Route: 048
     Dates: start: 20190624, end: 20190626
  4. CANDESARTAN. [Concomitant]
     Active Substance: CANDESARTAN
     Indication: HYPERTENSION
     Dosage: UNK
     Route: 065
  5. PANTOPRAZOLE [Suspect]
     Active Substance: PANTOPRAZOLE
     Indication: ABDOMINAL DISCOMFORT
     Dosage: UNK
     Route: 065

REACTIONS (4)
  - Infection [Unknown]
  - Paranasal sinus discomfort [Unknown]
  - Drug interaction [Unknown]
  - Hiccups [Recovered/Resolved]

NARRATIVE: CASE EVENT DATE: 2019
